FAERS Safety Report 18325234 (Version 2)
Quarter: 2020Q4

REPORT INFORMATION
  Report Type: Spontaneous
  Country: BR (occurrence: BR)
  Receive Date: 20200928
  Receipt Date: 20201006
  Transmission Date: 20210113
  Serious: Yes (Other)
  Sender: FDA-Public Use
  Company Number: BR-AMGEN-BRASP2017166825

PATIENT
  Age: 28 Year
  Sex: Male

DRUGS (1)
  1. ENBREL [Suspect]
     Active Substance: ETANERCEPT
     Indication: RHEUMATOID ARTHRITIS
     Dosage: 50 MG, WEEKLY (ONCE PER WEEK)
     Route: 065
     Dates: start: 201111, end: 202008

REACTIONS (6)
  - Abdominal pain upper [Unknown]
  - Articular calcification [Unknown]
  - Liver disorder [Unknown]
  - Nausea [Unknown]
  - Arthropathy [Unknown]
  - Feeding disorder [Unknown]
